FAERS Safety Report 23338384 (Version 5)
Quarter: 2024Q1

REPORT INFORMATION
  Report Type: Report from Study
  Country: IT (occurrence: IT)
  Receive Date: 20231226
  Receipt Date: 20240209
  Transmission Date: 20240410
  Serious: Yes (Other)
  Sender: FDA-Public Use
  Company Number: IT-JNJFOC-20231262836

PATIENT
  Age: 71 Year
  Sex: Male

DRUGS (6)
  1. SPRAVATO [Suspect]
     Active Substance: ESKETAMINE
     Indication: Depression
     Dosage: 28 MG (1 DEVICE)
     Dates: start: 20231130, end: 20231130
  2. SPRAVATO [Suspect]
     Active Substance: ESKETAMINE
     Dosage: 28 MG (1 DEVICE)
     Dates: start: 20231205, end: 20231205
  3. SPRAVATO [Suspect]
     Active Substance: ESKETAMINE
     Dosage: 28 MG (1 DEVICE)
     Dates: start: 20231207, end: 20231207
  4. SPRAVATO [Suspect]
     Active Substance: ESKETAMINE
     Dosage: 28 MG (1 DEVICE)
     Dates: start: 20231212, end: 20231212
  5. SPRAVATO [Suspect]
     Active Substance: ESKETAMINE
     Dosage: 28 MG (1 DEVICE)
     Dates: start: 20231214, end: 20231214
  6. SPRAVATO [Suspect]
     Active Substance: ESKETAMINE
     Dosage: 28 MG (1 DEVICE)
     Dates: start: 20231221, end: 20231221

REACTIONS (4)
  - Hypoxia [Recovered/Resolved]
  - Vomiting [Recovered/Resolved]
  - Muscle contractions involuntary [Recovered/Resolved]
  - Influenza [Recovering/Resolving]

NARRATIVE: CASE EVENT DATE: 20231130
